FAERS Safety Report 8605887-4 (Version None)
Quarter: 2012Q3

REPORT INFORMATION
  Report Type: 
  Country: None (occurrence: None)
  Receive Date: 20120820
  Receipt Date: 20120814
  Transmission Date: 20120928
  Serious: Yes (Other)
  Sender: FDA-Public Use
  Company Number: JP-GLAXOSMITHKLINE-B0805370A

PATIENT
  Sex: Female

DRUGS (8)
  1. ARRANON [Suspect]
     Route: 042
     Dates: start: 20120408, end: 20120408
  2. FENTANYL CITRATE [Concomitant]
     Route: 061
     Dates: start: 20120522, end: 20120526
  3. ARRANON [Suspect]
     Route: 042
     Dates: start: 20120524, end: 20120524
  4. ARRANON [Suspect]
     Route: 042
     Dates: start: 20120406, end: 20120406
  5. NEOPHAGEN C [Concomitant]
     Route: 065
     Dates: start: 20120522, end: 20120526
  6. ARRANON [Suspect]
     Route: 042
     Dates: start: 20120526, end: 20120526
  7. ARRANON [Suspect]
     Route: 042
     Dates: start: 20120522, end: 20120522
  8. ARRANON [Suspect]
     Indication: T-CELL CHRONIC LYMPHOCYTIC LEUKAEMIA
     Dosage: 1800MG PER DAY
     Route: 042
     Dates: start: 20120404, end: 20120404

REACTIONS (1)
  - BLOOD CREATINE PHOSPHOKINASE INCREASED [None]
